FAERS Safety Report 10156656 (Version 3)
Quarter: 2014Q4

REPORT INFORMATION
  Report Type: Spontaneous
  Country: FR (occurrence: FR)
  Receive Date: 20140507
  Receipt Date: 20141226
  Transmission Date: 20150528
  Serious: Yes (Other)
  Sender: FDA-Public Use
  Company Number: FR-RANBAXY-2014R1-80775

PATIENT

DRUGS (1)
  1. IBUPROFENE [Suspect]
     Active Substance: IBUPROFEN
     Indication: PROPHYLAXIS
     Route: 065

REACTIONS (2)
  - Pulmonary hypertension [Unknown]
  - Hypoxia [Recovered/Resolved]
